FAERS Safety Report 8372887-1 (Version None)
Quarter: 2012Q2

REPORT INFORMATION
  Report Type: 
  Country: None (occurrence: None)
  Receive Date: 20120521
  Receipt Date: 20120508
  Transmission Date: 20120825
  Serious: Yes (Hospitalization, Other)
  Sender: FDA-Public Use
  Company Number: DE-PFIZER INC-2012115442

PATIENT
  Age: 50 Year
  Sex: Male

DRUGS (17)
  1. PREGABALIN [Concomitant]
     Dosage: UNK
     Dates: start: 20120502
  2. SILODOSIN [Concomitant]
     Dosage: UNK
     Dates: start: 20120508
  3. LISINOPRIL [Concomitant]
     Dosage: UNK
     Dates: start: 20120502
  4. METAMIZOLE [Concomitant]
     Dosage: UNK
     Dates: start: 20120502
  5. PANTOPRAZOLE [Suspect]
     Dosage: UNK
     Route: 065
     Dates: start: 20120502
  6. UBRETID [Suspect]
     Dosage: UNK
     Route: 065
     Dates: start: 20120502
  7. LORAZEPAM [Concomitant]
     Dosage: UNK
     Dates: start: 20120502
  8. IBUPROFEN [Concomitant]
     Dosage: UNK
     Dates: start: 20120502
  9. UBRETID [Suspect]
     Dosage: UNK
     Dates: start: 20120508
  10. CITALOPRAM [Concomitant]
     Dosage: UNK
     Dates: start: 20120502
  11. TOPIRAMATE [Concomitant]
     Dosage: UNK
     Dates: start: 20120508
  12. DULOXETINE [Concomitant]
     Dosage: UNK
     Dates: start: 20120502
  13. DULOXETINE [Concomitant]
     Dosage: UNK
     Dates: start: 20120508
  14. CITALOPRAM [Concomitant]
     Dosage: UNK
     Dates: start: 20120508
  15. PREGABALIN [Concomitant]
     Dosage: UNK
     Dates: start: 20120508
  16. MIRTAZAPINE [Concomitant]
     Dosage: UNK
     Dates: start: 20120502
  17. MIRTAZAPINE [Concomitant]
     Dosage: UNK
     Dates: start: 20120508

REACTIONS (3)
  - SUICIDE ATTEMPT [None]
  - INTENTIONAL OVERDOSE [None]
  - FATIGUE [None]
